FAERS Safety Report 9989519 (Version 1)
Quarter: 2014Q1

REPORT INFORMATION
  Report Type: Spontaneous
  Country: US (occurrence: US)
  Receive Date: 20140310
  Receipt Date: 20140310
  Transmission Date: 20141002
  Serious: No
  Sender: FDA-Public Use
  Company Number: US-ABBVIE-13P-163-1136221-00

PATIENT
  Age: 47 Year
  Sex: Female
  Weight: 59.93 kg

DRUGS (4)
  1. HUMIRA [Suspect]
     Indication: RHEUMATOID ARTHRITIS
     Route: 058
     Dates: start: 201111
  2. METHOTREXATE [Concomitant]
     Indication: RHEUMATOID ARTHRITIS
  3. VITAMIN B12 [Concomitant]
     Indication: VITAMIN SUPPLEMENTATION
  4. SOLODYN [Concomitant]
     Indication: ACNE

REACTIONS (2)
  - Injury associated with device [Recovering/Resolving]
  - Injection site haemorrhage [Recovered/Resolved]
